FAERS Safety Report 11129553 (Version 3)
Quarter: 2015Q3

REPORT INFORMATION
  Report Type: Other
  Country: IT (occurrence: IT)
  Receive Date: 20150521
  Receipt Date: 20150721
  Transmission Date: 20151125
  Serious: Yes (Life-Threatening, Hospitalization, Other)
  Sender: FDA-Public Use
  Company Number: IT-APOTEX-2015AP009197

PATIENT

DRUGS (3)
  1. DEFLAZACORT [Suspect]
     Active Substance: DEFLAZACORT
     Indication: PYREXIA
     Dosage: 30 MG, QD
     Route: 048
     Dates: start: 20150123
  2. AMPICILLIN [Suspect]
     Active Substance: AMPICILLIN
     Indication: PYREXIA
     Dosage: 3 G, DAILY
     Route: 065
     Dates: start: 20140107, end: 20140114
  3. AZITHROMYCIN [Suspect]
     Active Substance: AZITHROMYCIN ANHYDROUS
     Indication: PYREXIA
     Dosage: 500 MG, QD
     Route: 048
     Dates: start: 20150115, end: 20150122

REACTIONS (3)
  - Autoimmune hepatitis [Not Recovered/Not Resolved]
  - Drug-induced liver injury [Not Recovered/Not Resolved]
  - Hepatitis acute [Not Recovered/Not Resolved]

NARRATIVE: CASE EVENT DATE: 20150210
